FAERS Safety Report 8333683-4 (Version None)
Quarter: 2012Q2

REPORT INFORMATION
  Report Type: 
  Country: None (occurrence: None)
  Receive Date: 20120503
  Receipt Date: 20120423
  Transmission Date: 20120825
  Serious: Yes (Other)
  Sender: FDA-Public Use
  Company Number: US-BAYER-2012-040373

PATIENT

DRUGS (1)
  1. ALKA-SELTZER ORIGINAL [Suspect]
     Indication: DYSPEPSIA
     Route: 048

REACTIONS (3)
  - DYSPNOEA [None]
  - DYSPEPSIA [None]
  - PRODUCT QUALITY ISSUE [None]
